FAERS Safety Report 5523250-X (Version None)
Quarter: 2007Q4

REPORT INFORMATION
  Report Type: 
  Country: None (occurrence: None)
  Receive Date: 20071116
  Receipt Date: 20071031
  Transmission Date: 20080405
  Serious: Yes (Hospitalization)
  Sender: FDA-Public Use
  Company Number: 2007BI020014

PATIENT
  Age: 35 Year
  Sex: Female
  Weight: 64 kg

DRUGS (6)
  1. AVONEX [Suspect]
     Indication: MULTIPLE SCLEROSIS
     Dosage: 30 UG; QW; IM
     Route: 030
     Dates: start: 20051201, end: 20070801
  2. IMUREK [Concomitant]
  3. REBIF [Concomitant]
  4. FLUOXETINE [Concomitant]
  5. LEVOMEPROMAZINE [Concomitant]
  6. HORMONAL CONTRACEPTIVE [Concomitant]

REACTIONS (5)
  - ATAXIA [None]
  - GAIT DISTURBANCE [None]
  - SECONDARY PROGRESSIVE MULTIPLE SCLEROSIS [None]
  - URINARY TRACT INFECTION [None]
  - VULVOVAGINAL MYCOTIC INFECTION [None]
